FAERS Safety Report 12248941 (Version 2)
Quarter: 2016Q2

REPORT INFORMATION
  Report Type: Report from Study
  Country: US (occurrence: US)
  Receive Date: 20160408
  Receipt Date: 20160505
  Transmission Date: 20160815
  Serious: Yes (Death)
  Sender: FDA-Public Use
  Company Number: US-PFIZER INC-2016198226

PATIENT
  Age: 17 Year
  Sex: Female
  Weight: 57 kg

DRUGS (1)
  1. TETRACYCLINE HCL [Suspect]
     Active Substance: TETRACYCLINE HYDROCHLORIDE
     Indication: PYELONEPHRITIS
     Dosage: 3.5 G, DAILY
     Route: 042

REACTIONS (1)
  - Liver disorder [Fatal]
